FAERS Safety Report 19210128 (Version 1)
Quarter: 2021Q2

REPORT INFORMATION
  Report Type: Spontaneous
  Country: IE (occurrence: IE)
  Receive Date: 20210504
  Receipt Date: 20210504
  Transmission Date: 20210717
  Serious: Yes (Other)
  Sender: FDA-Public Use
  Company Number: IE-ROCHE-2822823

PATIENT

DRUGS (3)
  1. METHOTREXATE. [Suspect]
     Active Substance: METHOTREXATE
     Indication: GIANT CELL ARTERITIS
     Route: 065
  2. CYCLOPHOSPHAMIDE. [Suspect]
     Active Substance: CYCLOPHOSPHAMIDE
     Indication: GIANT CELL ARTERITIS
     Route: 065
  3. RITUXIMAB. [Suspect]
     Active Substance: RITUXIMAB
     Indication: GIANT CELL ARTERITIS
     Route: 065

REACTIONS (6)
  - Necrosis [Unknown]
  - Arthralgia [Unknown]
  - Neuropathy peripheral [Unknown]
  - Pyrexia [Unknown]
  - Skin lesion [Unknown]
  - Headache [Unknown]
